FAERS Safety Report 9882888 (Version 2)
Quarter: 2014Q1

REPORT INFORMATION
  Report Type: Other
  Country: US (occurrence: US)
  Receive Date: 20140207
  Receipt Date: 20140207
  Transmission Date: 20141002
  Serious: No
  Sender: FDA-Public Use
  Company Number: US-ACORDA-ACO_38484_2013

PATIENT
  Sex: Female
  Weight: 59.86 kg

DRUGS (3)
  1. AMPYRA [Suspect]
     Indication: GAIT DISTURBANCE
     Dosage: 10 MG, BID
     Route: 048
     Dates: start: 2010
  2. METHOTREXATE SODIUM [Concomitant]
     Indication: MULTIPLE SCLEROSIS
     Dosage: 12 MG, Q 2 MONTHS
     Route: 037
     Dates: start: 201106
  3. TECFIDERA [Concomitant]
     Indication: MULTIPLE SCLEROSIS
     Dosage: 240 MG, BID
     Route: 048
     Dates: start: 201308

REACTIONS (3)
  - Flushing [Unknown]
  - Insomnia [Recovering/Resolving]
  - Inappropriate schedule of drug administration [Unknown]
